FAERS Safety Report 20500269 (Version 16)
Quarter: 2022Q3

REPORT INFORMATION
  Report Type: Spontaneous
  Country: GB (occurrence: GB)
  Receive Date: 20220222
  Receipt Date: 20220923
  Transmission Date: 20221027
  Serious: Yes (Life-Threatening, Hospitalization, Disabling, Other)
  Sender: FDA-Public Use
  Company Number: None

PATIENT
  Age: 56 Year
  Sex: Female
  Weight: 80 kg

DRUGS (28)
  1. DOMPERIDONE [Suspect]
     Active Substance: DOMPERIDONE
     Indication: Product used for unknown indication
     Dosage: UNK
     Route: 048
  2. LANSOPRAZOLE [Suspect]
     Active Substance: LANSOPRAZOLE
     Indication: Reflux laryngitis
     Dosage: UNK
     Route: 065
  3. PFIZER-BIONTECH COVID-19 VACCINE [Suspect]
     Active Substance: TOZINAMERAN
     Indication: COVID-19 immunisation
     Dosage: 1 DOSAGE FORM, TOTAL, (DOSE 3, SINGLE)
     Route: 065
     Dates: start: 20211204, end: 20211204
  4. MODERNA COVID-19 VACCINE [Suspect]
     Active Substance: ELASOMERAN
     Indication: COVID-19 immunisation
     Dosage: 1 DOSAGE FORM(1 DOSAGE FORM, SINGLE), TOTAL
     Route: 030
     Dates: start: 20211204, end: 20211204
  5. MODERNA COVID-19 VACCINE [Suspect]
     Active Substance: ELASOMERAN
     Dosage: 1 DOSAGE FORM
     Route: 030
     Dates: start: 20211204
  6. MODERNA COVID-19 VACCINE [Suspect]
     Active Substance: ELASOMERAN
     Dosage: 1 DOSAGE FORM
     Route: 065
     Dates: start: 20211204
  7. COVID-19 VACCINE NOS [Suspect]
     Active Substance: COVID-19 VACCINE NOS
     Indication: Product used for unknown indication
     Dosage: UNK(DOSE 3B)
     Route: 065
     Dates: start: 20211204
  8. OMEPRAZOLE MAGNESIUM [Interacting]
     Active Substance: OMEPRAZOLE MAGNESIUM
     Indication: Reflux laryngitis
     Dosage: 20 MILLIGRAM
     Route: 048
     Dates: start: 20190118, end: 20190120
  9. OMEPRAZOLE MAGNESIUM [Interacting]
     Active Substance: OMEPRAZOLE MAGNESIUM
     Indication: Gastrooesophageal reflux disease
     Dosage: 200 MILLIGRAM, QD
     Route: 048
     Dates: start: 20190118, end: 20190120
  10. SOLIFENACIN SUCCINATE [Interacting]
     Active Substance: SOLIFENACIN SUCCINATE
     Indication: Product used for unknown indication
     Dosage: UNK UNK, UNKNOWN FREQ
     Route: 048
  11. SOLIFENACIN SUCCINATE [Interacting]
     Active Substance: SOLIFENACIN SUCCINATE
     Dosage: UNK
     Route: 048
  12. TRIMETHOPRIM [Interacting]
     Active Substance: TRIMETHOPRIM
     Indication: Urinary tract infection
     Dosage: 400 MG, QD (200 MG, QD (200 MG, ONCE A DAY)
     Route: 048
     Dates: start: 20190118, end: 20190120
  13. TRIMETHOPRIM [Interacting]
     Active Substance: TRIMETHOPRIM
     Dosage: 1200 MILLIGRAM, QD
     Route: 065
  14. TRIMETHOPRIM [Interacting]
     Active Substance: TRIMETHOPRIM
     Dosage: 200 MG, QD (200 MILLIGRAM, ONCE A DAY)
     Route: 048
     Dates: start: 20190118, end: 20190120
  15. TRIMETHOPRIM [Interacting]
     Active Substance: TRIMETHOPRIM
     Dosage: UNK MILLIGRAM
     Route: 048
  16. TRIMETHOPRIM [Interacting]
     Active Substance: TRIMETHOPRIM
     Dosage: 600 MILLIGRAM
     Route: 048
  17. BECLOMETHASONE DIPROPIONATE [Concomitant]
     Active Substance: BECLOMETHASONE DIPROPIONATE
     Indication: Product used for unknown indication
     Dosage: UNK
     Route: 065
  18. BECLOMETHASONE DIPROPIONATE [Concomitant]
     Active Substance: BECLOMETHASONE DIPROPIONATE
     Dosage: UNK
     Route: 065
  19. BECLOMETHASONE DIPROPIONATE [Concomitant]
     Active Substance: BECLOMETHASONE DIPROPIONATE
     Dosage: UNK
     Route: 065
  20. DULOXETINE [Concomitant]
     Active Substance: DULOXETINE
     Indication: Product used for unknown indication
     Dosage: UNK UNK, UNKNOWN FREQ.
     Route: 065
  21. DULOXETINE [Concomitant]
     Active Substance: DULOXETINE
     Dosage: UNK
     Route: 065
  22. DULOXETINE [Concomitant]
     Active Substance: DULOXETINE
     Dosage: UNK
     Route: 065
  23. SOLIFENACIN [Interacting]
     Active Substance: SOLIFENACIN
     Indication: Product used for unknown indication
     Dosage: UNK
     Route: 065
  24. SOLIFENACIN [Interacting]
     Active Substance: SOLIFENACIN
     Dosage: UNK
     Route: 065
  25. Solifenacin succinate od [Concomitant]
     Indication: Product used for unknown indication
     Dosage: UNK
     Route: 065
  26. TRIMETHOPRIM [Concomitant]
     Active Substance: TRIMETHOPRIM
     Indication: Urinary tract infection
     Dosage: 400 MILLIGRAM, TID
     Route: 048
     Dates: start: 20190118, end: 20190120
  27. TRIMETHOPRIM [Concomitant]
     Active Substance: TRIMETHOPRIM
     Dosage: 1200 MILLIGRAM, QD
     Route: 048
     Dates: start: 20190118
  28. TRIMETHOPRIM [Concomitant]
     Active Substance: TRIMETHOPRIM
     Dosage: 400 MILLIGRAM, QD
     Route: 048
     Dates: start: 20190118, end: 20190120

REACTIONS (21)
  - Irritable bowel syndrome [Unknown]
  - Blood potassium decreased [Unknown]
  - Peripheral swelling [Unknown]
  - Blood sodium decreased [Unknown]
  - Diarrhoea [Recovered/Resolved]
  - Food poisoning [Not Recovered/Not Resolved]
  - Illness [Not Recovered/Not Resolved]
  - Nightmare [Not Recovered/Not Resolved]
  - Gastrointestinal pain [Not Recovered/Not Resolved]
  - Contusion [Not Recovered/Not Resolved]
  - Genital ulceration [Recovered/Resolved]
  - Feeling abnormal [Unknown]
  - Condition aggravated [Unknown]
  - Mucosal inflammation [Recovered/Resolved]
  - Genital pain [Recovered/Resolved]
  - Oral pain [Recovering/Resolving]
  - Abdominal pain upper [Recovering/Resolving]
  - Abdominal pain [Recovered/Resolved]
  - Vomiting [Unknown]
  - Malaise [Unknown]
  - Drug interaction [Unknown]

NARRATIVE: CASE EVENT DATE: 20190121
